FAERS Safety Report 6834941-2 (Version None)
Quarter: 2010Q3

REPORT INFORMATION
  Report Type: 
  Country: None (occurrence: None)
  Receive Date: 20100712
  Receipt Date: 20070417
  Transmission Date: 20110219
  Serious: No
  Sender: FDA-Public Use
  Company Number: US-PFIZER INC-2007030966

PATIENT
  Sex: Female
  Weight: 79.38 kg

DRUGS (5)
  1. CHANTIX [Suspect]
     Indication: SMOKING CESSATION THERAPY
     Dates: start: 20070221
  2. NORVASC [Concomitant]
     Indication: HYPERTENSION
  3. HYDROCHLOROTHIAZIDE [Concomitant]
     Indication: HYPERTENSION
  4. ADVAIR DISKUS 100/50 [Concomitant]
  5. MONTELUKAST SODIUM [Concomitant]

REACTIONS (7)
  - ABNORMAL DREAMS [None]
  - DYSARTHRIA [None]
  - FATIGUE [None]
  - INFLUENZA LIKE ILLNESS [None]
  - NAUSEA [None]
  - POOR QUALITY SLEEP [None]
  - SOMNOLENCE [None]
